FAERS Safety Report 21071590 (Version 1)
Quarter: 2022Q3

REPORT INFORMATION
  Report Type: Spontaneous
  Country: US (occurrence: US)
  Receive Date: 20220712
  Receipt Date: 20220712
  Transmission Date: 20221027
  Serious: No
  Sender: FDA-Public Use
  Company Number: US-ORGANON-O2207USA000230

PATIENT
  Age: 60 Year
  Sex: Female

DRUGS (5)
  1. COZAAR [Suspect]
     Active Substance: LOSARTAN POTASSIUM
     Dosage: HALF TABLET DAILY
     Route: 048
     Dates: end: 202206
  2. COZAAR [Suspect]
     Active Substance: LOSARTAN POTASSIUM
     Dosage: 40 MILLIGRAM, DAILY
     Route: 048
     Dates: start: 202206, end: 202206
  3. COZAAR [Suspect]
     Active Substance: LOSARTAN POTASSIUM
     Dosage: HALF TABLET DAILY
     Route: 048
     Dates: start: 202206
  4. ATENOLOL [Concomitant]
     Active Substance: ATENOLOL
     Dosage: HALF A TABLET DAILY
     Route: 048
     Dates: end: 202206
  5. ATENOLOL [Concomitant]
     Active Substance: ATENOLOL
     Dosage: WHOLE TABLET DAILY
     Route: 048
     Dates: start: 202206

REACTIONS (6)
  - Blood pressure increased [Recovered/Resolved]
  - Heart sounds abnormal [Recovered/Resolved]
  - Heart rate irregular [Recovered/Resolved]
  - Heart rate increased [Recovered/Resolved]
  - Incorrect dose administered [Unknown]
  - Wrong technique in product usage process [Unknown]

NARRATIVE: CASE EVENT DATE: 20220601
